FAERS Safety Report 9959942 (Version 3)
Quarter: 2014Q1

REPORT INFORMATION
  Report Type: Spontaneous
  Country: NZ (occurrence: NZ)
  Receive Date: 20140304
  Receipt Date: 20140325
  Transmission Date: 20141002
  Serious: Yes (Other)
  Sender: FDA-Public Use
  Company Number: 2014SP001055

PATIENT
  Sex: Male

DRUGS (2)
  1. CARBOPLATIN [Suspect]
     Indication: LUNG ADENOCARCINOMA STAGE IV
     Dates: start: 20130912, end: 20131031
  2. VINORELBINE [Suspect]
     Indication: LUNG ADENOCARCINOMA STAGE IV
     Dates: start: 20130912, end: 20131031

REACTIONS (4)
  - Drug ineffective [Unknown]
  - Disease progression [Unknown]
  - Lung adenocarcinoma stage IV [Unknown]
  - Off label use [Unknown]
